FAERS Safety Report 5978026-6 (Version None)
Quarter: 2008Q4

REPORT INFORMATION
  Report Type: 
  Country: None (occurrence: None)
  Receive Date: 20081125
  Receipt Date: 20081110
  Transmission Date: 20090506
  Serious: Yes (Other)
  Sender: FDA-Public Use
  Company Number: 2008S1020347

PATIENT
  Age: 39 Year
  Sex: Male

DRUGS (6)
  1. AZATHIOPRINE [Suspect]
     Indication: CONJUNCTIVITIS
     Dates: start: 20040801, end: 20050501
  2. DAPSONE [Suspect]
     Indication: CONJUNCTIVITIS
     Dates: start: 20040401
  3. PREDNISOLONE [Suspect]
     Indication: CONJUNCTIVITIS
     Dates: start: 20040801
  4. PREDNISOLONE [Suspect]
     Indication: CONJUNCTIVITIS
     Dates: start: 20051001
  5. CYCLOPHOSPHAMIDE [Suspect]
     Indication: CONJUNCTIVITIS
     Dates: start: 20051001
  6. MYCOPHENOLATE MOFETIL [Suspect]
     Indication: CONJUNCTIVITIS
     Dates: start: 20050501

REACTIONS (2)
  - EYE INFECTION BACTERIAL [None]
  - ULCERATIVE KERATITIS [None]
